FAERS Safety Report 25684473 (Version 1)
Quarter: 2025Q3

REPORT INFORMATION
  Report Type: Spontaneous
  Country: CN (occurrence: CN)
  Receive Date: 20250815
  Receipt Date: 20250815
  Transmission Date: 20251021
  Serious: Yes (Other)
  Sender: ROCHE
  Company Number: CN-ROCHE-10000356416

PATIENT
  Age: 59 Year
  Sex: Female

DRUGS (6)
  1. TECENTRIQ [Suspect]
     Active Substance: ATEZOLIZUMAB
     Indication: Neoplasm malignant
     Route: 042
     Dates: start: 20250630, end: 20250630
  2. LINEZOLID [Concomitant]
     Active Substance: LINEZOLID
     Indication: Pneumonia bacterial
     Route: 042
     Dates: start: 20250722, end: 20250726
  3. PIPERACILLIN AND TAZOBACTAM [Concomitant]
     Active Substance: PIPERACILLIN SODIUM\TAZOBACTAM SODIUM
     Indication: Pneumonia bacterial
     Route: 042
     Dates: start: 20250720, end: 20250722
  4. PIPERACILLIN AND TAZOBACTAM [Concomitant]
     Active Substance: PIPERACILLIN SODIUM\TAZOBACTAM SODIUM
     Route: 042
     Dates: start: 20250722, end: 20250726
  5. OMEPRAZOLE [Concomitant]
     Active Substance: OMEPRAZOLE
     Dates: start: 20250720, end: 20250722
  6. ONDANSETRON [Concomitant]
     Active Substance: ONDANSETRON
     Dates: start: 20250720, end: 20250722

REACTIONS (8)
  - Mental disorder [Recovering/Resolving]
  - Disorganised speech [Recovering/Resolving]
  - Dysphoria [Recovering/Resolving]
  - Cognitive disorder [Recovered/Resolved]
  - Dysarthria [Recovered/Resolved]
  - Pyrexia [Not Recovered/Not Resolved]
  - Hypotension [Recovering/Resolving]
  - Protein total decreased [Recovering/Resolving]

NARRATIVE: CASE EVENT DATE: 20250722
